FAERS Safety Report 24685180 (Version 1)
Quarter: 2024Q4

REPORT INFORMATION
  Report Type: Spontaneous
  Country: JP (occurrence: JP)
  Receive Date: 20241202
  Receipt Date: 20241202
  Transmission Date: 20250114
  Serious: Yes (Hospitalization, Other)
  Sender: UCB
  Company Number: JP-UCBJ-CD202411706UCBPHAPROD

PATIENT
  Age: 3 Decade
  Sex: Female
  Weight: 39 kg

DRUGS (1)
  1. ZILBRYSQ [Suspect]
     Active Substance: ZILUCOPLAN
     Indication: Myasthenia gravis
     Dosage: 16.6 MILLIGRAM, ONCE DAILY (QD)
     Route: 058
     Dates: start: 20241101

REACTIONS (2)
  - Myasthenia gravis [Unknown]
  - Immunoadsorption therapy [Unknown]

NARRATIVE: CASE EVENT DATE: 20241101
